FAERS Safety Report 17548044 (Version 19)
Quarter: 2025Q3

REPORT INFORMATION
  Report Type: Report from Study
  Country: CA (occurrence: CA)
  Receive Date: 20200317
  Receipt Date: 20250704
  Transmission Date: 20251020
  Serious: Yes (Hospitalization, Other)
  Sender: TAKEDA
  Company Number: CA-TAKEDA-2019TUS025167

PATIENT
  Age: 46 Year
  Sex: Female

DRUGS (18)
  1. VEDOLIZUMAB [Suspect]
     Active Substance: VEDOLIZUMAB
     Indication: Crohn^s disease
  2. VEDOLIZUMAB [Suspect]
     Active Substance: VEDOLIZUMAB
  3. VEDOLIZUMAB [Suspect]
     Active Substance: VEDOLIZUMAB
  4. VEDOLIZUMAB [Suspect]
     Active Substance: VEDOLIZUMAB
  5. VEDOLIZUMAB [Suspect]
     Active Substance: VEDOLIZUMAB
  6. VEDOLIZUMAB [Suspect]
     Active Substance: VEDOLIZUMAB
  7. VEDOLIZUMAB [Suspect]
     Active Substance: VEDOLIZUMAB
  8. VEDOLIZUMAB [Suspect]
     Active Substance: VEDOLIZUMAB
  9. VEDOLIZUMAB [Suspect]
     Active Substance: VEDOLIZUMAB
  10. VEDOLIZUMAB [Suspect]
     Active Substance: VEDOLIZUMAB
  11. VEDOLIZUMAB [Suspect]
     Active Substance: VEDOLIZUMAB
  12. VEDOLIZUMAB [Suspect]
     Active Substance: VEDOLIZUMAB
  13. VEDOLIZUMAB [Suspect]
     Active Substance: VEDOLIZUMAB
  14. VEDOLIZUMAB [Suspect]
     Active Substance: VEDOLIZUMAB
  15. VEDOLIZUMAB [Suspect]
     Active Substance: VEDOLIZUMAB
  16. VEDOLIZUMAB [Suspect]
     Active Substance: VEDOLIZUMAB
  17. VEDOLIZUMAB [Suspect]
     Active Substance: VEDOLIZUMAB
  18. VEDOLIZUMAB [Suspect]
     Active Substance: VEDOLIZUMAB

REACTIONS (18)
  - Crohn^s disease [Unknown]
  - Abdominal hernia [Recovered/Resolved]
  - Rectal haemorrhage [Unknown]
  - COVID-19 [Unknown]
  - Stoma complication [Unknown]
  - Secretion discharge [Unknown]
  - Abscess oral [Unknown]
  - Pollakiuria [Unknown]
  - Product dose omission issue [Unknown]
  - Drug ineffective [Unknown]
  - Procedural complication [Unknown]
  - Procedural pain [Unknown]
  - Blood pressure increased [Unknown]
  - Arthralgia [Unknown]
  - Aphonia [Recovered/Resolved]
  - Dysphonia [Recovered/Resolved]
  - Fatigue [Recovered/Resolved]
  - Influenza [Recovered/Resolved]

NARRATIVE: CASE EVENT DATE: 20190701
